FAERS Safety Report 9706745 (Version 5)
Quarter: 2014Q4

REPORT INFORMATION
  Report Type: Spontaneous
  Country: US (occurrence: US)
  Receive Date: 20131125
  Receipt Date: 20141204
  Transmission Date: 20150529
  Serious: Yes (Hospitalization, Other)
  Sender: FDA-Public Use
  Company Number: US-009507513-1311USA009889

PATIENT
  Sex: Female
  Weight: 68.27 kg

DRUGS (6)
  1. OXYBUTYNIN [Concomitant]
     Active Substance: OXYBUTYNIN
     Indication: HYPERTONIC BLADDER
     Dosage: UNK
     Dates: start: 201008, end: 2012
  2. SPIRIVA [Concomitant]
     Active Substance: TIOTROPIUM BROMIDE MONOHYDRATE
     Indication: CHRONIC OBSTRUCTIVE PULMONARY DISEASE
     Dosage: 18 MICROGRAM, QD
     Route: 055
     Dates: start: 201006
  3. SYMBICORT [Concomitant]
     Active Substance: BUDESONIDE\FORMOTEROL FUMARATE DIHYDRATE
     Indication: BRONCHOSPASM
     Dosage: 80-160/4.5 MCG/ACT 2 PUFFS BID
     Route: 055
     Dates: start: 201006
  4. JANUMET [Suspect]
     Active Substance: METFORMIN HYDROCHLORIDE\SITAGLIPTIN PHOSPHATE
     Dosage: 50 MG/1000 MG, QPM
     Route: 048
  5. JANUMET [Suspect]
     Active Substance: METFORMIN HYDROCHLORIDE\SITAGLIPTIN PHOSPHATE
     Indication: TYPE 2 DIABETES MELLITUS
     Dosage: 50 MG/1000 MG, BID
     Route: 048
     Dates: start: 201202, end: 201209
  6. LISINOPRIL. [Concomitant]
     Active Substance: LISINOPRIL
     Indication: HYPERTENSION
     Dosage: 20 MG, QD
     Route: 048
     Dates: start: 201008

REACTIONS (38)
  - Pancreatic carcinoma metastatic [Unknown]
  - Vision blurred [Unknown]
  - Bile duct stent insertion [Unknown]
  - Gastrooesophageal reflux disease [Unknown]
  - Asthenia [Unknown]
  - Pulmonary mass [Unknown]
  - Pneumonia [Unknown]
  - Bile duct stent insertion [Unknown]
  - Biliary dilatation [Unknown]
  - Diverticulum intestinal [Unknown]
  - Anaemia of malignant disease [Unknown]
  - Dyspepsia [Unknown]
  - Biliary sphincterotomy [Unknown]
  - Diabetic ketoacidotic hyperglycaemic coma [Unknown]
  - Anxiety [Unknown]
  - Adrenal mass [Unknown]
  - Psoriasis [Unknown]
  - Malnutrition [Unknown]
  - Bile duct stent removal [Unknown]
  - Stomatitis [Unknown]
  - Klebsiella sepsis [Unknown]
  - Transaminases increased [Unknown]
  - Hypercholesterolaemia [Unknown]
  - Diabetes mellitus inadequate control [Unknown]
  - Pancreatic lesion excision [Unknown]
  - Seizure [Unknown]
  - Metastasis [Unknown]
  - Acute respiratory failure [Unknown]
  - Hyperbilirubinaemia [Unknown]
  - Device related infection [Recovered/Resolved]
  - Stent removal [Unknown]
  - Depression [Unknown]
  - Intra-cerebral aneurysm operation [Unknown]
  - Metastases to lymph nodes [Unknown]
  - Bile duct stent insertion [Unknown]
  - Alopecia [Unknown]
  - Metastases to bone [Unknown]
  - Insomnia [Unknown]

NARRATIVE: CASE EVENT DATE: 201204
